FAERS Safety Report 5680421-X (Version None)
Quarter: 2008Q1

REPORT INFORMATION
  Report Type: 
  Country: None (occurrence: None)
  Receive Date: 20080326
  Receipt Date: 20080312
  Transmission Date: 20080703
  Serious: Yes (Congenital Anomaly)
  Sender: FDA-Public Use
  Company Number: A0662856A

PATIENT
  Sex: Female
  Weight: 3.1 kg

DRUGS (2)
  1. PAXIL [Suspect]
     Indication: DEPRESSION
     Dosage: 20MG PER DAY
     Dates: start: 19970101, end: 19990101
  2. VITAMIN TAB [Concomitant]

REACTIONS (6)
  - ATRIAL SEPTAL DEFECT [None]
  - CARDIAC MURMUR [None]
  - CARDIOMEGALY [None]
  - DEVELOPMENTAL DELAY [None]
  - DRUG EXPOSURE DURING PREGNANCY [None]
  - PULMONARY VALVE STENOSIS [None]
